FAERS Safety Report 8540391-3 (Version None)
Quarter: 2012Q3

REPORT INFORMATION
  Report Type: 
  Country: None (occurrence: None)
  Receive Date: 20120726
  Receipt Date: 20120306
  Transmission Date: 20120928
  Serious: No
  Sender: FDA-Public Use
  Company Number: US-ASTRAZENECA-2011SE16050

PATIENT
  Age: 60 Year
  Sex: Female
  Weight: 86.2 kg

DRUGS (9)
  1. SEROQUEL XR [Suspect]
     Indication: MAJOR DEPRESSION
     Route: 048
     Dates: start: 20090101
  2. PROZAC [Concomitant]
     Indication: MAJOR DEPRESSION
  3. SEROQUEL XR [Suspect]
     Route: 048
  4. SEROQUEL XR [Suspect]
     Indication: SLEEP DISORDER
     Route: 048
     Dates: start: 20090101
  5. SEROQUEL XR [Suspect]
     Route: 048
  6. KLONOPIN [Concomitant]
     Indication: ANXIETY
     Dosage: PRN
  7. SEROQUEL XR [Suspect]
     Route: 048
  8. WELLBUTRIN [Concomitant]
     Indication: MAJOR DEPRESSION
  9. SEROQUEL XR [Suspect]
     Route: 048

REACTIONS (5)
  - DRUG DOSE OMISSION [None]
  - POVERTY OF THOUGHT CONTENT [None]
  - INSOMNIA [None]
  - OFF LABEL USE [None]
  - WRONG DRUG ADMINISTERED [None]
